FAERS Safety Report 19802428 (Version 1)
Quarter: 2021Q3

REPORT INFORMATION
  Report Type: Spontaneous
  Country: US (occurrence: US)
  Receive Date: 20210902
  Receipt Date: 20210902
  Transmission Date: 20211014
  Serious: No
  Sender: FDA-Public Use
  Company Number: None

PATIENT
  Age: 66 Year
  Sex: Female
  Weight: 99.79 kg

DRUGS (26)
  1. SERTRALINE HCL [Concomitant]
     Active Substance: SERTRALINE HYDROCHLORIDE
  2. ATORVASTATIN CALCIUM (LIPITOR) [Concomitant]
  3. MULTI VITAMIN (CENTRUM) [Concomitant]
  4. GUMMY VITAMIN C 250MG [Concomitant]
     Active Substance: ASCORBIC ACID
  5. CLONOPIN [Concomitant]
     Active Substance: CLONAZEPAM
  6. KEFLEX [Concomitant]
     Active Substance: CEPHALEXIN
  7. PRILOSEC [Concomitant]
     Active Substance: OMEPRAZOLE MAGNESIUM
  8. LEVOTHYROXZINE [Concomitant]
  9. CLOTRMAZOLE [Concomitant]
  10. WELLBRUTIN [Concomitant]
  11. ASENAPINE GENERIC FOR SAPHRIS [Suspect]
     Active Substance: ASENAPINE
     Indication: PARANOIA
     Dosage: ?QUANTITY:5 MG MILLIGRAM(S); AND 10MG?OTHER FREQUENCY:AM;, BEDTIME?
     Route: 060
     Dates: start: 1974
  12. TOLTERODINE [Concomitant]
     Active Substance: TOLTERODINE
  13. DEPAKOTE [Concomitant]
     Active Substance: DIVALPROEX SODIUM
  14. CLONAZEPAM. [Concomitant]
     Active Substance: CLONAZEPAM
  15. FLONASE [Concomitant]
     Active Substance: FLUTICASONE PROPIONATE
  16. ZYRTEC [Concomitant]
     Active Substance: CETIRIZINE HYDROCHLORIDE
  17. VITAMINS D3 [Concomitant]
  18. PRAZOSIN. [Concomitant]
     Active Substance: PRAZOSIN
  19. FLOMAX [Concomitant]
     Active Substance: TAMSULOSIN HYDROCHLORIDE
  20. ESTRADIOL. [Concomitant]
     Active Substance: ESTRADIOL
  21. OMNICEF [Concomitant]
     Active Substance: CEFDINIR
  22. TYLENOL [Concomitant]
     Active Substance: ACETAMINOPHEN
  23. ASENAPINE GENERIC FOR SAPHRIS [Suspect]
     Active Substance: ASENAPINE
     Indication: BIPOLAR DISORDER
     Dosage: ?QUANTITY:5 MG MILLIGRAM(S); AND 10MG?OTHER FREQUENCY:AM;, BEDTIME?
     Route: 060
     Dates: start: 1974
  24. LISINOPRIL. [Concomitant]
     Active Substance: LISINOPRIL
  25. SENOXON (SENNA) [Concomitant]
  26. MACROBID [Concomitant]
     Active Substance: NITROFURANTOIN\NITROFURANTOIN MONOHYDRATE

REACTIONS (3)
  - Product taste abnormal [None]
  - Plicated tongue [None]
  - Hypoaesthesia oral [None]

NARRATIVE: CASE EVENT DATE: 2014
